FAERS Safety Report 5162530-7 (Version None)
Quarter: 2006Q4

REPORT INFORMATION
  Report Type: 
  Country: None (occurrence: None)
  Receive Date: 20061121
  Receipt Date: 20061114
  Transmission Date: 20070319
  Serious: Yes (Hospitalization)
  Sender: FDA-Public Use
  Company Number: 06H-163-0311230-00

PATIENT
  Sex: Female

DRUGS (1)
  1. MAGNESIUM SULFATE [Suspect]
     Dosage: 2 GM, INTRAVENOUS
     Route: 042
     Dates: start: 20041129, end: 20041129

REACTIONS (2)
  - MALAISE [None]
  - POSTOPERATIVE WOUND INFECTION [None]
